FAERS Safety Report 9845037 (Version 1)
Quarter: 2014Q1

REPORT INFORMATION
  Report Type: Spontaneous
  Country: US (occurrence: US)
  Receive Date: 20140127
  Receipt Date: 20140127
  Transmission Date: 20141002
  Serious: Yes (Other)
  Sender: FDA-Public Use
  Company Number: US-AMGEN-USASP2014004891

PATIENT
  Age: 35 Year
  Sex: Female

DRUGS (3)
  1. ENBREL [Suspect]
     Indication: RHEUMATOID ARTHRITIS
     Dosage: 50 MG, QWK
     Route: 065
     Dates: start: 1998
  2. TOPAMAX [Suspect]
     Indication: BIPOLAR DISORDER
     Dosage: UNK
     Route: 065
  3. HUMIRA [Concomitant]
     Dosage: UNK (3 YEARS)

REACTIONS (13)
  - Factor V Leiden mutation [Recovered/Resolved]
  - Thrombophlebitis septic [Recovered/Resolved]
  - International normalised ratio abnormal [Not Recovered/Not Resolved]
  - Local swelling [Not Recovered/Not Resolved]
  - Mobility decreased [Not Recovered/Not Resolved]
  - Insomnia [Not Recovered/Not Resolved]
  - Dizziness [Not Recovered/Not Resolved]
  - Cardiolipin antibody [Recovered/Resolved]
  - Coagulopathy [Recovered/Resolved]
  - Injection site extravasation [Recovered/Resolved]
  - Injection site haematoma [Not Recovered/Not Resolved]
  - Injection site haemorrhage [Recovered/Resolved]
  - Injection site pain [Not Recovered/Not Resolved]
